FAERS Safety Report 8886414 (Version 2)
Quarter: 2012Q4

REPORT INFORMATION
  Report Type: 
  Country: TH (occurrence: TH)
  Receive Date: 20121105
  Receipt Date: 20121120
  Transmission Date: 20130627
  Serious: Yes (Death, Other)
  Sender: FDA-Public Use
  Company Number: PHHY2012TH100054

PATIENT
  Age: 39 Year
  Sex: Male

DRUGS (1)
  1. GLIVEC [Suspect]
     Indication: CHRONIC MYELOID LEUKAEMIA
     Dosage: 400 mg
     Dates: start: 20101214

REACTIONS (5)
  - Cerebral haemorrhage [Fatal]
  - Blast crisis in myelogenous leukaemia [Unknown]
  - Headache [Unknown]
  - White blood cell count increased [Unknown]
  - Platelet count decreased [Unknown]
